FAERS Safety Report 5326864-5 (Version None)
Quarter: 2007Q2

REPORT INFORMATION
  Report Type: 
  Country: None (occurrence: None)
  Receive Date: 20070511
  Receipt Date: 20070425
  Transmission Date: 20071010
  Serious: Yes (Hospitalization)
  Sender: FDA-Public Use
  Company Number: 155899ISR

PATIENT
  Age: 32 Year
  Sex: Male

DRUGS (1)
  1. VINCRISTINE [Suspect]
     Route: 037

REACTIONS (9)
  - ANAL SPHINCTER ATONY [None]
  - DENERVATION ATROPHY [None]
  - DYSAESTHESIA [None]
  - HYPOAESTHESIA [None]
  - PARAPARESIS [None]
  - RESPIRATORY ALKALOSIS [None]
  - SENSORIMOTOR DISORDER [None]
  - URINARY RETENTION [None]
  - WRONG DRUG ADMINISTERED [None]
